FAERS Safety Report 15130888 (Version 1)
Quarter: 2018Q3

REPORT INFORMATION
  Report Type: Spontaneous
  Country: ZA (occurrence: ZA)
  Receive Date: 20180711
  Receipt Date: 20180711
  Transmission Date: 20181010
  Serious: Yes (Hospitalization)
  Sender: FDA-Public Use
  Company Number: ZA-PFIZER INC-2018276979

PATIENT
  Age: 59 Year
  Sex: Female

DRUGS (15)
  1. LANCAP [Suspect]
     Active Substance: LANSOPRAZOLE
  2. BECEZE [Suspect]
     Active Substance: BECLOMETHASONE DIPROPIONATE
  3. DUOVENT [Suspect]
     Active Substance: FENOTEROL HYDROBROMIDE
  4. MYLAN FUROSEMIDE [Suspect]
     Active Substance: FUROSEMIDE
  5. VENTEZE (SALBUTAMOL) [Suspect]
     Active Substance: ALBUTEROL
  6. ALDACTONE [Suspect]
     Active Substance: SPIRONOLACTONE
  7. ESCITALOPRAM [Suspect]
     Active Substance: ESCITALOPRAM OXALATE
  8. EPILIM [Suspect]
     Active Substance: VALPROATE SODIUM
  9. NEXIPRAZ [Suspect]
     Active Substance: ESOMEPRAZOLE
  10. PLENISH?K [Suspect]
     Active Substance: POTASSIUM CHLORIDE
  11. EUTHYROX [Suspect]
     Active Substance: LEVOTHYROXINE SODIUM
  12. REDILEV [Suspect]
     Active Substance: LEVETIRACETAM
  13. IPVENT [Suspect]
     Active Substance: IPRATROPIUM BROMIDE
  14. RIVOTRIL [Suspect]
     Active Substance: CLONAZEPAM
  15. SYMBICORD [Suspect]
     Active Substance: BUDESONIDE\FORMOTEROL

REACTIONS (2)
  - Seizure [Unknown]
  - Loss of consciousness [Unknown]

NARRATIVE: CASE EVENT DATE: 20180622
